FAERS Safety Report 18592159 (Version 6)
Quarter: 2021Q1

REPORT INFORMATION
  Report Type: Report from Study
  Country: US (occurrence: US)
  Receive Date: 20201209
  Receipt Date: 20210111
  Transmission Date: 20210419
  Serious: Yes (Hospitalization, Other)
  Sender: FDA-Public Use
  Company Number: US-SUN PHARMACEUTICAL INDUSTRIES LTD-2020R1-270348

PATIENT
  Age: 62 Year
  Sex: Male

DRUGS (1)
  1. CLOZAPINE. [Suspect]
     Active Substance: CLOZAPINE
     Indication: SCHIZOPHRENIA
     Dosage: 100 MILLIGRAM, BID
     Route: 048
     Dates: start: 1990, end: 20201125

REACTIONS (5)
  - Neutropenia [Not Recovered/Not Resolved]
  - Withdrawal syndrome [Unknown]
  - Cholinergic rebound syndrome [Unknown]
  - Psychiatric evaluation [Unknown]
  - Dehydration [Unknown]

NARRATIVE: CASE EVENT DATE: 20201117
